FAERS Safety Report 7140375-6 (Version None)
Quarter: 2010Q4

REPORT INFORMATION
  Report Type: 
  Country: None (occurrence: None)
  Receive Date: 20101207
  Receipt Date: 20101129
  Transmission Date: 20110411
  Serious: No
  Sender: FDA-Public Use
  Company Number: US-BIOGENIDEC-2010BI042045

PATIENT
  Age: 40 Year
  Sex: Female

DRUGS (1)
  1. TYSABRI [Suspect]
     Indication: MULTIPLE SCLEROSIS
     Route: 042
     Dates: start: 20090901

REACTIONS (8)
  - ANXIETY [None]
  - CRYING [None]
  - DIZZINESS [None]
  - HYPERTENSION [None]
  - INFUSION SITE HAEMATOMA [None]
  - MALAISE [None]
  - PALPITATIONS [None]
  - VESSEL PERFORATION [None]
